FAERS Safety Report 24944246 (Version 2)
Quarter: 2025Q1

REPORT INFORMATION
  Report Type: Spontaneous
  Country: CH (occurrence: CH)
  Receive Date: 20250207
  Receipt Date: 20250310
  Transmission Date: 20250409
  Serious: Yes (Other)
  Sender: AURINIA PHARMACEUTICALS
  Company Number: CH-OTSUKA-2025_002611

PATIENT

DRUGS (11)
  1. LUPKYNIS [Suspect]
     Active Substance: VOCLOSPORIN
     Indication: Lupus nephritis
     Dosage: 23.5 MILLIGRAM, BID
     Route: 048
     Dates: start: 20240226
  2. LUPKYNIS [Suspect]
     Active Substance: VOCLOSPORIN
     Indication: Proteinuria
  3. LUPKYNIS [Suspect]
     Active Substance: VOCLOSPORIN
     Indication: Hypoalbuminaemia
  4. TAZOBACTAM [Concomitant]
     Active Substance: TAZOBACTAM
     Indication: Product used for unknown indication
  5. PREDNISOLONE ACETATE [Concomitant]
     Active Substance: PREDNISOLONE ACETATE
     Indication: Nephrotic syndrome
     Dosage: 500 MILLIGRAM, TID
     Route: 042
     Dates: start: 202401
  6. PREDNISOLONE ACETATE [Concomitant]
     Active Substance: PREDNISOLONE ACETATE
     Indication: Thrombocytopenia
     Dosage: 500 MILLIGRAM, TID
     Route: 048
     Dates: start: 20240220, end: 20240222
  7. PREDNISOLONE ACETATE [Concomitant]
     Active Substance: PREDNISOLONE ACETATE
     Dosage: 60 MILLIGRAM, TID
     Route: 048
  8. PLAQUENIL [Concomitant]
     Active Substance: HYDROXYCHLOROQUINE SULFATE
     Indication: Product used for unknown indication
     Dosage: 400 MILLIGRAM, QD
     Dates: start: 20240118
  9. RITUXIMAB [Concomitant]
     Active Substance: RITUXIMAB
     Indication: Thrombocytopenia
     Dosage: 500 MILLIGRAM, BID
     Dates: start: 20240213, end: 20240226
  10. RITUXIMAB [Concomitant]
     Active Substance: RITUXIMAB
     Dosage: 1 GRAM, BID
     Dates: start: 20240226
  11. BELIMUMAB [Concomitant]
     Active Substance: BELIMUMAB
     Indication: Product used for unknown indication
     Route: 042
     Dates: start: 20240408

REACTIONS (4)
  - Pulmonary embolism [Recovered/Resolved]
  - Antiphospholipid antibodies positive [Unknown]
  - Respiratory syncytial virus infection [Unknown]
  - Product prescribing issue [Unknown]

NARRATIVE: CASE EVENT DATE: 20240226
